FAERS Safety Report 8242575-0 (Version None)
Quarter: 2012Q1

REPORT INFORMATION
  Report Type: 
  Country: None (occurrence: None)
  Receive Date: 20120329
  Receipt Date: 20120320
  Transmission Date: 20120608
  Serious: Yes (Other)
  Sender: FDA-Public Use
  Company Number: PHHY2012AU024990

PATIENT
  Sex: Female

DRUGS (3)
  1. ZOMETA [Suspect]
     Indication: BLOOD CALCIUM INCREASED
     Dosage: UNK UKN, UNK
     Dates: start: 20111101
  2. FEMARA [Suspect]
     Dosage: 1 DF, DAILY
     Dates: start: 20070101
  3. ZOMETA [Suspect]
     Dosage: UNK UKN, UNK
     Dates: end: 20120101

REACTIONS (18)
  - MUSCULOSKELETAL STIFFNESS [None]
  - MEMORY IMPAIRMENT [None]
  - HYPERHIDROSIS [None]
  - DIARRHOEA [None]
  - CARDIAC FLUTTER [None]
  - WEIGHT INCREASED [None]
  - METABOLIC DISORDER [None]
  - HOT FLUSH [None]
  - HEADACHE [None]
  - ABDOMINAL DISCOMFORT [None]
  - FATIGUE [None]
  - ABDOMINAL PAIN UPPER [None]
  - PAIN IN EXTREMITY [None]
  - DIZZINESS [None]
  - VISION BLURRED [None]
  - PARAESTHESIA [None]
  - CONSTIPATION [None]
  - BONE PAIN [None]
